FAERS Safety Report 5547366-7 (Version None)
Quarter: 2007Q4

REPORT INFORMATION
  Report Type: 
  Country: None (occurrence: None)
  Receive Date: 20071211
  Receipt Date: 20070221
  Transmission Date: 20080405
  Serious: No
  Sender: FDA-Public Use
  Company Number: US-AMGEN-KDL212364

PATIENT
  Sex: Female

DRUGS (1)
  1. ENBREL [Suspect]
     Indication: ANKYLOSING SPONDYLITIS
     Route: 058
     Dates: start: 20061225

REACTIONS (5)
  - EYE PRURITUS [None]
  - EYE SWELLING [None]
  - MIGRAINE [None]
  - NAUSEA [None]
  - VOMITING [None]
